FAERS Safety Report 4337361-8 (Version None)
Quarter: 2004Q2

REPORT INFORMATION
  Report Type: 
  Country: None (occurrence: None)
  Receive Date: 20040407
  Receipt Date: 20040322
  Transmission Date: 20050107
  Serious: Yes (Other)
  Sender: FDA-Public Use
  Company Number: DE_040213108

PATIENT
  Age: 59 Year
  Sex: Male

DRUGS (2)
  1. CIALIS [Suspect]
     Indication: ERECTILE DYSFUNCTION
     Dosage: 20 MG
     Dates: start: 20040222
  2. ZOCOR [Concomitant]

REACTIONS (7)
  - CEREBRAL INFARCTION [None]
  - CHEST PAIN [None]
  - PAIN [None]
  - PARAESTHESIA [None]
  - PARALYSIS [None]
  - TRANSIENT ISCHAEMIC ATTACK [None]
  - VISUAL FIELD DEFECT [None]
